FAERS Safety Report 7542944-8 (Version None)
Quarter: 2011Q2

REPORT INFORMATION
  Report Type: 
  Country: None (occurrence: None)
  Receive Date: 20110613
  Receipt Date: 20110531
  Transmission Date: 20111010
  Serious: Yes (Other)
  Sender: FDA-Public Use
  Company Number: PHFR2011GB03410

PATIENT
  Sex: Male

DRUGS (2)
  1. KHAT [Concomitant]
  2. CLOZAPINE [Suspect]
     Indication: SCHIZOPHRENIA

REACTIONS (4)
  - APATHY [None]
  - IRRITABILITY [None]
  - PERSONALITY CHANGE [None]
  - DECREASED INTEREST [None]
